FAERS Safety Report 13881066 (Version 6)
Quarter: 2017Q4

REPORT INFORMATION
  Report Type: Spontaneous
  Country: IE (occurrence: IE)
  Receive Date: 20170818
  Receipt Date: 20171227
  Transmission Date: 20180320
  Serious: Yes (Hospitalization, Other)
  Sender: FDA-Public Use
  Company Number: IE-PFIZER INC-2017321068

PATIENT
  Age: 51 Year
  Sex: Female

DRUGS (2)
  1. GENOTROPIN [Suspect]
     Active Substance: SOMATROPIN
     Indication: GROWTH HORMONE DEFICIENCY
     Dosage: 0.2 MG, 1X/DAY
     Dates: start: 20170614, end: 20170722
  2. GENOTROPIN [Suspect]
     Active Substance: SOMATROPIN
     Indication: PITUITARY TUMOUR BENIGN
     Dosage: 0.2 MG, 1X/DAY
     Dates: start: 20170807

REACTIONS (11)
  - Discomfort [Not Recovered/Not Resolved]
  - Asthenia [Unknown]
  - Headache [Recovered/Resolved]
  - Joint stiffness [Unknown]
  - Lower respiratory tract infection [Unknown]
  - Fatigue [Unknown]
  - Anxiety [Unknown]
  - Glycosylated haemoglobin increased [Unknown]
  - Emotional disorder [Unknown]
  - Eye pain [Recovered/Resolved]
  - Sinusitis [Unknown]

NARRATIVE: CASE EVENT DATE: 20170722
